FAERS Safety Report 16192085 (Version 1)
Quarter: 2019Q2

REPORT INFORMATION
  Report Type: Spontaneous
  Country: US (occurrence: US)
  Receive Date: 20190412
  Receipt Date: 20190412
  Transmission Date: 20190711
  Serious: No
  Sender: FDA-Public Use
  Company Number: US-TEVA-2019-US-1035748

PATIENT
  Sex: Female

DRUGS (1)
  1. POTASSIUM CHLORIDE TEVA [Suspect]
     Active Substance: POTASSIUM CHLORIDE
     Dates: start: 20190305

REACTIONS (2)
  - Blood potassium decreased [Unknown]
  - Drug ineffective [Unknown]
